FAERS Safety Report 12683427 (Version 5)
Quarter: 2021Q1

REPORT INFORMATION
  Report Type: Spontaneous
  Country: US (occurrence: US)
  Receive Date: 20160825
  Receipt Date: 20210219
  Transmission Date: 20210419
  Serious: No
  Sender: FDA-Public Use
  Company Number: US-PFIZER INC-2016400508

PATIENT
  Age: 74 Year
  Sex: Female

DRUGS (3)
  1. XANAX [Suspect]
     Active Substance: ALPRAZOLAM
     Dosage: UNK, DAILY (HALF OF THE 0.25)
  2. XANAX [Suspect]
     Active Substance: ALPRAZOLAM
     Indication: ANXIETY
     Dosage: 2 DF, DAILY
  3. XANAX [Suspect]
     Active Substance: ALPRAZOLAM
     Dosage: 0.25 MG

REACTIONS (9)
  - Drug ineffective [Unknown]
  - Paraesthesia [Unknown]
  - Dizziness [Unknown]
  - Nasal congestion [Unknown]
  - Hyperhidrosis [Unknown]
  - Abdominal pain upper [Unknown]
  - Intentional product use issue [Unknown]
  - Malaise [Unknown]
  - Secretion discharge [Unknown]
